FAERS Safety Report 14667700 (Version 1)
Quarter: 2018Q1

REPORT INFORMATION
  Report Type: Spontaneous
  Country: US (occurrence: US)
  Receive Date: 20180322
  Receipt Date: 20180322
  Transmission Date: 20180509
  Serious: No
  Sender: FDA-Public Use
  Company Number: US-PFIZER INC-2018116340

PATIENT
  Age: 47 Year
  Sex: Male

DRUGS (1)
  1. SUTENT [Suspect]
     Active Substance: SUNITINIB MALATE
     Indication: NEOPLASM
     Dosage: 37.5 MG, CYCLIC (1QD X 4 WEEKS ON AND 2 WEEKS OFF)
     Dates: start: 20171122, end: 20180316

REACTIONS (1)
  - Neoplasm progression [Unknown]
